FAERS Safety Report 20771297 (Version 10)
Quarter: 2022Q4

REPORT INFORMATION
  Report Type: Report from Study
  Country: BE (occurrence: BE)
  Receive Date: 20220429
  Receipt Date: 20221011
  Transmission Date: 20230113
  Serious: Yes (Hospitalization, Disabling, Other)
  Sender: FDA-Public Use
  Company Number: BE-BRISTOL-MYERS SQUIBB COMPANY-2022-027165

PATIENT
  Age: 71 Year
  Sex: Male
  Weight: 58 kg

DRUGS (37)
  1. IPILIMUMAB [Suspect]
     Active Substance: IPILIMUMAB
     Indication: Non-small cell lung cancer
     Dosage: MOST RECENT DOSE OF 57.5 MG ON 02-MAR-2022?DOSE WAS DELAYED DUE TO SAES
     Route: 042
     Dates: start: 20210512
  2. CISPLATIN [Suspect]
     Active Substance: CISPLATIN
     Indication: Non-small cell lung cancer
     Dosage: MOST RECENT DOSE OF 134.25 MG ON 15-MAR-2021?DOSE WAS DELAYED DUE TO SAES
     Route: 065
     Dates: start: 20210222
  3. CISPLATIN [Suspect]
     Active Substance: CISPLATIN
     Dosage: MOST RECENT DOSE OF 134.25 MG ON 15-MAR-2021?DOSE WAS DELAYED DUE TO SAES
     Route: 065
     Dates: start: 20210315
  4. PEMETREXED DISODIUM [Suspect]
     Active Substance: PEMETREXED DISODIUM
     Indication: Non-small cell lung cancer
     Dosage: MOST RECENT DOSE 895 MG ON 15-MAR-2021?DOSE WAS DELAYED DUE TO SAES
     Route: 065
     Dates: start: 20210222
  5. PEMETREXED DISODIUM [Suspect]
     Active Substance: PEMETREXED DISODIUM
     Dosage: MOST RECENT DOSE 895 MG ON 15-MAR-2021?DOSE WAS DELAYED DUE TO SAES
     Route: 065
     Dates: start: 20210315
  6. MOMETASONE [Concomitant]
     Active Substance: MOMETASONE
     Indication: Product used for unknown indication
     Dosage: 1 DF- 2 UNITS NOS?AS NEEDED?ONGOING
     Route: 055
     Dates: start: 1998
  7. MOMETASONE [Concomitant]
     Active Substance: MOMETASONE
  8. AUGMENTIN [Concomitant]
     Active Substance: AMOXICILLIN\CLAVULANATE POTASSIUM
     Indication: Product used for unknown indication
     Dosage: 3 TIMES PER DAY
     Route: 048
     Dates: start: 20220413, end: 20220420
  9. METHYLPREDNISOLONE ACETATE [Concomitant]
     Active Substance: METHYLPREDNISOLONE ACETATE
     Indication: Dyspnoea
     Dosage: DAILY; PER DAY
     Route: 048
     Dates: start: 20220413, end: 20220420
  10. CILOXAN [Concomitant]
     Active Substance: CIPROFLOXACIN HYDROCHLORIDE
     Indication: Product used for unknown indication
     Dosage: 1DF- 1 UNIT NOS?DAILY; PER DAY?ONGOING
     Route: 001
     Dates: start: 20220323
  11. ZOLPIDEM TARTRATE [Concomitant]
     Active Substance: ZOLPIDEM TARTRATE
     Indication: Prophylaxis
     Dosage: 1 DF- 1 UNIT NOS?DAILY; PER DAY?ONGOING
     Route: 048
     Dates: start: 20211229
  12. KAYELAXATE SODIQUE [Concomitant]
     Indication: Product used for unknown indication
     Dosage: KAYELAXATE SODIQUE?ONCE
     Route: 048
     Dates: start: 20220413, end: 20220413
  13. ACETAMINOPHEN [Concomitant]
     Active Substance: ACETAMINOPHEN
     Indication: Product used for unknown indication
     Dosage: ONGOING
     Route: 048
     Dates: start: 20210218
  14. ACETAMINOPHEN [Concomitant]
     Active Substance: ACETAMINOPHEN
  15. BUDESONIDE [Concomitant]
     Active Substance: BUDESONIDE
     Indication: Prophylaxis
     Dosage: DAILY; PER DAY?ONGOING
     Route: 055
     Dates: start: 1998
  16. BUDESONIDE [Concomitant]
     Active Substance: BUDESONIDE
  17. MAXIDEX [BENZALKONIUM CHLORIDE;DEXAMETHASONE;PHENYLMERCURIC NITRATE] [Concomitant]
     Indication: Prophylaxis
     Dosage: 1DF= 0.1 UNIT NOS?ONGOING
     Route: 001
     Dates: start: 1998
  18. MAXIDEX [BENZALKONIUM CHLORIDE;DEXAMETHASONE;PHENYLMERCURIC NITRATE] [Concomitant]
     Dosage: MAXIDEX 1MG/1MLS?1DF- 1 UNIT NOS?DAILY; PER DAY?ONGOING
     Route: 001
     Dates: start: 20220323
  19. GLYCERIN\MINERAL OIL\PETROLATUM [Concomitant]
     Active Substance: GLYCERIN\MINERAL OIL\PETROLATUM
     Indication: Product used for unknown indication
     Dosage: 1 DF= 1 UNIT NOS??S NEEDED?ONGOING
     Route: 061
     Dates: start: 20210805
  20. MOVICOL [Concomitant]
     Active Substance: POLYETHYLENE GLYCOL 3350\POTASSIUM CHLORIDE\SODIUM BICARBONATE\SODIUM CHLORIDE
     Indication: Product used for unknown indication
     Dosage: AS NEEDED?ONGOING
     Route: 048
     Dates: start: 20210602
  21. VENTOLIN [Concomitant]
     Active Substance: ALBUTEROL SULFATE
     Indication: Product used for unknown indication
     Dosage: AS NEEDED?ONGOING
     Route: 055
     Dates: start: 20200831
  22. RUPATALL [Concomitant]
     Indication: Product used for unknown indication
     Dosage: RUPATALL (INTERMITTENT)?1 DF- 1 UNIT NOS?DAILY; PER DAY?ONGOING
     Route: 048
     Dates: start: 20220209
  23. MONTELUKAST [Concomitant]
     Active Substance: MONTELUKAST SODIUM
     Indication: Asthma
     Dosage: DAILY; PER DAY?ONGOING
     Route: 048
     Dates: start: 20220302
  24. FLUTICASONE PROPIONATE\FORMOTEROL FUMARATE [Concomitant]
     Active Substance: FLUTICASONE PROPIONATE\FORMOTEROL FUMARATE
     Indication: Product used for unknown indication
     Dosage: FLUTIFORM 250/10?1 DF- 2 UNITS NOS?BD; TWICE PER DAY?ONGOING
     Route: 045
     Dates: start: 20220323
  25. SPIRIVA RESPIMAT [Concomitant]
     Active Substance: TIOTROPIUM BROMIDE
     Indication: Asthma
     Dosage: SPIRIVA RESPIMAT 2.5 MCG/DOSE?1 DF- 2.5 MCG/DOSE?DAILY; PER DAY?ONGOING
     Route: 055
     Dates: start: 20220302
  26. ASTRAZENECA COVID-19 VACCINE [Concomitant]
     Active Substance: AZD-1222
     Indication: Prophylaxis
     Dosage: UNK
     Route: 030
     Dates: start: 20210428
  27. ASTRAZENECA COVID-19 VACCINE [Concomitant]
     Active Substance: AZD-1222
     Dosage: UNK
     Route: 030
     Dates: start: 20210702
  28. SEDISTRESS [Concomitant]
     Indication: Prophylaxis
     Dosage: ONGOING?AS NEEDED
     Route: 048
     Dates: start: 202101
  29. SEDISTRESS [Concomitant]
     Dates: start: 20210512
  30. SEDISTRESS SLEEP [Concomitant]
     Indication: Product used for unknown indication
     Dosage: 1 DOSAGE FORM= 500 UNITS NOS?ONGOING.
     Dates: start: 20210305
  31. SEDISTRESS SLEEP [Concomitant]
     Dosage: ONGOING?1 DOSAGE FORM= 200 UNITS NOS.
     Dates: start: 20210306
  32. TRAZODONE [Concomitant]
     Active Substance: TRAZODONE HYDROCHLORIDE
     Indication: Product used for unknown indication
     Dosage: ONGOING
     Route: 048
     Dates: start: 20210512
  33. LACTULOSE [Concomitant]
     Active Substance: LACTULOSE
     Indication: Product used for unknown indication
     Dosage: ONGOING.
     Route: 048
     Dates: start: 20210502
  34. LORAZEPAM [Concomitant]
     Active Substance: LORAZEPAM
     Indication: Product used for unknown indication
     Dosage: ONGOING
     Route: 048
     Dates: start: 20210825
  35. VACCINE COVID-19 (PFIZER) [Concomitant]
     Indication: Prophylaxis
     Dosage: UNK
     Route: 030
     Dates: start: 20211011
  36. INFLUVAC TETRA [Concomitant]
     Active Substance: INFLUENZA VIRUS VACCINE QUADRIVALENT TYPE A+B
     Indication: Prophylaxis
     Route: 030
     Dates: start: 202111
  37. BECLOMETHASONE DIPROPIONATE\FORMOTEROL FUMARATE [Concomitant]
     Active Substance: BECLOMETHASONE DIPROPIONATE\FORMOTEROL FUMARATE
     Indication: Product used for unknown indication
     Dosage: 1 DF = 2 UNITS NOT SPECIFIED?AS NEEDED
     Route: 055
     Dates: start: 20211117

REACTIONS (2)
  - Hiccups [Recovered/Resolved]
  - Dehydration [Recovered/Resolved]

NARRATIVE: CASE EVENT DATE: 20220415
